FAERS Safety Report 10185435 (Version 1)
Quarter: 2014Q2

REPORT INFORMATION
  Report Type: Spontaneous
  Country: US (occurrence: None)
  Receive Date: 20140519
  Receipt Date: 20140519
  Transmission Date: 20141212
  Serious: No
  Sender: FDA-Public Use
  Company Number: 2014-00068

PATIENT
  Age: 25 Year
  Sex: Female
  Weight: 65.77 kg

DRUGS (2)
  1. ZICAM [Suspect]
     Indication: NASOPHARYNGITIS
     Dosage: RAPIDMELTS
     Route: 048
     Dates: start: 201402
  2. ZICAM [Suspect]
     Dosage: RAPIDMELTS
     Route: 048
     Dates: start: 201402

REACTIONS (2)
  - Anosmia [None]
  - Parosmia [None]
